FAERS Safety Report 6746012-4 (Version None)
Quarter: 2010Q2

REPORT INFORMATION
  Report Type: 
  Country: None (occurrence: None)
  Receive Date: 20100528
  Receipt Date: 20100520
  Transmission Date: 20101027
  Serious: Yes (Other)
  Sender: FDA-Public Use
  Company Number: JP-PFIZER INC-2010063480

PATIENT
  Age: 76 Year
  Sex: Female

DRUGS (4)
  1. LIPITOR [Suspect]
     Indication: DYSLIPIDAEMIA
     Dosage: 5 MG, UNK
     Route: 048
     Dates: start: 20080501
  2. LIPITOR [Suspect]
     Dosage: 5 MG, UNK
     Route: 048
  3. LIPITOR [Suspect]
     Dosage: 5 MG, UNK
     Route: 048
  4. LIPITOR [Suspect]
     Dosage: 5 MG, UNK
     Route: 048

REACTIONS (1)
  - CHROMATURIA [None]
